FAERS Safety Report 6135915-X (Version None)
Quarter: 2009Q1

REPORT INFORMATION
  Report Type: 
  Country: None (occurrence: None)
  Receive Date: 20090327
  Receipt Date: 20090316
  Transmission Date: 20090719
  Serious: Yes (Death, Other)
  Sender: FDA-Public Use
  Company Number: ES-JNJFOC-20090304820

PATIENT
  Sex: Female

DRUGS (8)
  1. REMICADE [Suspect]
     Route: 042
  2. REMICADE [Suspect]
     Indication: SARCOIDOSIS
     Route: 042
  3. GLUCOCORTICOID [Concomitant]
  4. AZATHIOPRINE [Concomitant]
  5. OMEPRAZOLE [Concomitant]
  6. BIPHOSPHONATES [Concomitant]
  7. CALCIUM AND VITAMIN D [Concomitant]
  8. STEROIDS [Concomitant]

REACTIONS (1)
  - CARDIAC FAILURE CONGESTIVE [None]
